FAERS Safety Report 6018730-7 (Version None)
Quarter: 2008Q4

REPORT INFORMATION
  Report Type: 
  Country: None (occurrence: None)
  Receive Date: 20081222
  Receipt Date: 20081209
  Transmission Date: 20090506
  Serious: Yes (Disabling)
  Sender: FDA-Public Use
  Company Number: GXKR2008US11786

PATIENT
  Age: 48 Year
  Sex: Female

DRUGS (1)
  1. MIDODRINE HYDROCHLORIDE [Suspect]
     Indication: HYPOTENSION
     Dosage: SEE IMAGE

REACTIONS (12)
  - ARTERIAL INSUFFICIENCY [None]
  - DRY GANGRENE [None]
  - ERYTHEMA [None]
  - INFECTION [None]
  - INSOMNIA [None]
  - ISCHAEMIA [None]
  - LEG AMPUTATION [None]
  - MICROANGIOPATHY [None]
  - PAIN [None]
  - PAIN IN EXTREMITY [None]
  - SKIN ULCER [None]
  - VASCULAR OCCLUSION [None]
